FAERS Safety Report 7772313-7 (Version None)
Quarter: 2011Q3

REPORT INFORMATION
  Report Type: 
  Country: None (occurrence: None)
  Receive Date: 20110922
  Receipt Date: 20100915
  Transmission Date: 20111222
  Serious: No
  Sender: FDA-Public Use
  Company Number: US-ASTRAZENECA-2007UW14096

PATIENT
  Age: 41 Year
  Sex: Male
  Weight: 107.5 kg

DRUGS (38)
  1. SEROQUEL [Suspect]
     Dosage: 100MG - 200MG
     Route: 048
  2. SEROQUEL [Suspect]
     Dosage: 25MG -200 MG DAILY
     Route: 048
     Dates: start: 20030130, end: 20070329
  3. LISINOPRIL [Concomitant]
     Indication: HYPERTENSION
     Route: 048
     Dates: start: 20050421
  4. METHOCARBAMOL [Concomitant]
     Route: 048
     Dates: start: 20050906
  5. ETODOLAC [Concomitant]
     Route: 048
     Dates: start: 20050421
  6. LORAZEPAM [Concomitant]
     Indication: DEPRESSION
     Dates: start: 19900101
  7. SEROQUEL [Suspect]
     Dosage: 50MG -200 MG DAILY
     Route: 048
     Dates: start: 20030117
  8. SEROQUEL [Suspect]
     Dosage: 25MG -200 MG DAILY
     Route: 048
     Dates: start: 20030130, end: 20070329
  9. SEROQUEL [Suspect]
     Indication: SLEEP DISORDER
     Route: 048
     Dates: start: 19900101
  10. SEROQUEL [Suspect]
     Dosage: 50MG -200 MG DAILY
     Route: 048
     Dates: start: 20030117
  11. SEROQUEL [Suspect]
     Dosage: 50MG -200 MG DAILY
     Route: 048
     Dates: start: 20030117
  12. TYLENOL-500 [Concomitant]
     Indication: PAIN
     Route: 048
     Dates: start: 20050421
  13. DIAZEPAM [Concomitant]
     Indication: DEPRESSION
     Dates: start: 19900101
  14. ABILIFY [Concomitant]
     Dates: start: 20080101
  15. SEROQUEL [Suspect]
     Indication: ANXIETY
     Route: 048
     Dates: start: 19900101
  16. SEROQUEL [Suspect]
     Dosage: 100MG - 200MG
     Route: 048
  17. SEROQUEL [Suspect]
     Dosage: 50MG -200 MG DAILY
     Route: 048
     Dates: start: 20030117
  18. DIVALPROEX SODIUM [Concomitant]
     Dates: start: 19900101
  19. PRILOSEC [Concomitant]
     Indication: GASTROOESOPHAGEAL REFLUX DISEASE
     Route: 048
     Dates: start: 20050421
  20. SIMVASTATIN [Concomitant]
     Indication: HYPERLIPIDAEMIA
     Dosage: 40MG- 80MG AT NIGHT
     Route: 048
     Dates: start: 20050906
  21. SEROQUEL [Suspect]
     Dosage: 25MG -200 MG DAILY
     Route: 048
     Dates: start: 20030130, end: 20070329
  22. DIVALPROEX SODIUM [Concomitant]
     Indication: BIPOLAR DISORDER
     Dosage: 500MG -1500MG DAILY
     Route: 048
     Dates: start: 20030117
  23. LORATADINE [Concomitant]
     Route: 048
     Dates: start: 20050421
  24. CHOLINE MAG TRISALICYLATE [Concomitant]
     Route: 048
     Dates: start: 20060311
  25. LITHIUM [Concomitant]
     Indication: BIPOLAR DISORDER
     Dates: start: 19900101
  26. SEROQUEL [Suspect]
     Indication: BIPOLAR DISORDER
     Route: 048
     Dates: start: 19900101
  27. SEROQUEL [Suspect]
     Indication: BIPOLAR I DISORDER
     Route: 048
     Dates: start: 19900101
  28. SEROQUEL [Suspect]
     Dosage: 100MG - 200MG
     Route: 048
  29. SEROQUEL [Suspect]
     Dosage: 100MG - 200MG
     Route: 048
  30. SEROQUEL [Suspect]
     Dosage: 50MG -200 MG DAILY
     Route: 048
     Dates: start: 20030117
  31. SEROQUEL [Suspect]
     Dosage: 100MG - 200MG
     Route: 048
  32. SEROQUEL [Suspect]
     Dosage: 25MG -200 MG DAILY
     Route: 048
     Dates: start: 20030130, end: 20070329
  33. SEROQUEL [Suspect]
     Dosage: 25MG -200 MG DAILY
     Route: 048
     Dates: start: 20030130, end: 20070329
  34. IBUPROFEN [Concomitant]
     Route: 048
     Dates: start: 20030117
  35. SEROQUEL [Suspect]
     Indication: DEPRESSION
     Route: 048
     Dates: start: 19900101
  36. TRAZODONE HCL [Concomitant]
     Route: 048
     Dates: start: 20050421
  37. BENADRYL [Concomitant]
     Route: 048
     Dates: start: 20030117
  38. GEODON [Concomitant]
     Dates: start: 20020101

REACTIONS (7)
  - DIABETES MELLITUS [None]
  - HYPERLIPIDAEMIA [None]
  - TYPE 2 DIABETES MELLITUS [None]
  - ROAD TRAFFIC ACCIDENT [None]
  - BLOOD CHOLESTEROL INCREASED [None]
  - HYPERGLYCAEMIA [None]
  - OSTEOARTHRITIS [None]
